FAERS Safety Report 10164700 (Version 2)
Quarter: 2014Q2

REPORT INFORMATION
  Report Type: Spontaneous
  Country: US (occurrence: US)
  Receive Date: 20140510
  Receipt Date: 20140510
  Transmission Date: 20141212
  Serious: No
  Sender: FDA-Public Use
  Company Number: US201212006582

PATIENT
  Age: 58 Year
  Sex: Male
  Weight: 115.65 kg

DRUGS (8)
  1. BYDUREON [Suspect]
     Indication: METABOLIC SYNDROME
     Dosage: LOT:73416,EXP:AP16,NDC:66780-226-01
     Route: 058
     Dates: start: 201202
  2. BYETTA PEN DISPOSABLE [Suspect]
     Indication: METABOLIC SYNDROME
     Route: 058
     Dates: start: 2010, end: 201206
  3. BYETTA PEN DISPOSABLE [Suspect]
     Indication: METABOLIC SYNDROME
     Route: 058
     Dates: start: 201206
  4. EXENATIDE 5MCG PEN, DISPOSABLE DEVICE [Concomitant]
  5. METFORMIN [Concomitant]
     Indication: METABOLIC SYNDROME
     Route: 048
     Dates: start: 2005
  6. BENICAR [Concomitant]
  7. CARVEDILOL [Concomitant]
  8. VICTOZA [Concomitant]
     Route: 058

REACTIONS (6)
  - Dizziness [Recovered/Resolved]
  - Blood glucose decreased [Recovered/Resolved]
  - Off label use [Not Recovered/Not Resolved]
  - Prescribed overdose [Unknown]
  - Underdose [Unknown]
  - Product quality issue [Unknown]
